FAERS Safety Report 8801724 (Version 3)
Quarter: 2012Q4

REPORT INFORMATION
  Report Type: 
  Country: US (occurrence: US)
  Receive Date: 20120921
  Receipt Date: 20121026
  Transmission Date: 20130627
  Serious: No
  Sender: FDA-Public Use
  Company Number: US-PFIZER INC-2012231744

PATIENT
  Age: 58 Year
  Sex: Female
  Weight: 86 kg

DRUGS (5)
  1. ALDACTONE [Suspect]
     Dosage: 50 mg, daily
     Route: 048
  2. NORVASC [Suspect]
     Dosage: 5 mg, daily
     Route: 048
  3. METFORMIN [Concomitant]
     Dosage: 500 mg, daily, with evening meals
  4. BENAZEPRIL [Concomitant]
     Dosage: 40 mg, daily
  5. CLONIDINE [Concomitant]
     Dosage: 0.1 mg, 2x/day

REACTIONS (2)
  - Glycosylated haemoglobin increased [Unknown]
  - High density lipoprotein increased [Unknown]
